FAERS Safety Report 19449197 (Version 6)
Quarter: 2022Q4

REPORT INFORMATION
  Report Type: Spontaneous
  Country: GB (occurrence: GB)
  Receive Date: 20210622
  Receipt Date: 20221104
  Transmission Date: 20230113
  Serious: Yes (Death, Hospitalization, Other)
  Sender: FDA-Public Use
  Company Number: None

PATIENT
  Age: 53 Year
  Sex: Male
  Weight: 122 kg

DRUGS (26)
  1. LOSARTAN [Suspect]
     Active Substance: LOSARTAN
     Indication: Hypertension
     Dosage: 50 MILLIGRAM, QD
     Route: 048
     Dates: start: 20201206, end: 20210308
  2. CLARITHROMYCIN [Suspect]
     Active Substance: CLARITHROMYCIN
     Indication: Pneumonia
     Dosage: 500 MG TWICE DAILY
     Route: 065
  3. AMOXICILLIN\CLAVULANIC ACID [Suspect]
     Active Substance: AMOXICILLIN\CLAVULANIC ACID
     Indication: Product used for unknown indication
     Dosage: 7-DAY COURSE
     Route: 048
  4. AMOXICILLIN\CLAVULANATE POTASSIUM [Suspect]
     Active Substance: AMOXICILLIN\CLAVULANATE POTASSIUM
     Indication: Pneumonia
     Dosage: 2 G TWO TIMES A DAY
     Route: 042
  5. BISOPROLOL [Suspect]
     Active Substance: BISOPROLOL
     Indication: Coronary artery disease
     Dosage: 7.5 MILLIGRAM, QD
     Route: 048
     Dates: start: 2017, end: 20210308
  6. FUROSEMIDE [Suspect]
     Active Substance: FUROSEMIDE
     Indication: Coronary artery disease
     Dosage: 20 MILLIGRAM, QD
     Route: 048
     Dates: start: 20201125, end: 20210308
  7. GEMCITABINE [Suspect]
     Active Substance: GEMCITABINE
     Indication: Leiomyosarcoma
     Dosage: 1710 MG, FREQUENCY:D1
     Route: 042
     Dates: start: 20210304, end: 20210304
  8. METOCLOPRAMIDE [Suspect]
     Active Substance: METOCLOPRAMIDE
     Indication: Nausea
     Dosage: 10 MG, PRN
     Route: 048
     Dates: start: 20201206, end: 2021
  9. OXYCODONE [Suspect]
     Active Substance: OXYCODONE
     Indication: Pelvic pain
     Dosage: 5 MG, PRN
     Route: 048
     Dates: start: 20201105
  10. PEMBROLIZUMAB [Suspect]
     Active Substance: PEMBROLIZUMAB
     Indication: Pleomorphic leiomyosarcoma
     Dosage: 200 MILLIGRAM, FREQUENCY: D1
     Route: 042
     Dates: start: 20201210
  11. OXYCONTIN [Suspect]
     Active Substance: OXYCODONE HYDROCHLORIDE
     Indication: Pain
     Dosage: 40 MILLIGRAM, ONCE
     Route: 065
     Dates: start: 20210224
  12. PIPERACILLIN SODIUM\TAZOBACTAM SODIUM [Suspect]
     Active Substance: PIPERACILLIN SODIUM\TAZOBACTAM SODIUM
     Indication: Pyrexia
     Route: 042
  13. ACETAMINOPHEN [Concomitant]
     Active Substance: ACETAMINOPHEN
     Indication: Pelvic pain
     Dosage: 1 GRAM, QD/PRN
     Route: 048
     Dates: start: 2008, end: 20210728
  14. ASPIRIN [Concomitant]
     Active Substance: ASPIRIN
     Indication: Prophylaxis
     Dosage: 75 MILLIGRAM, QD
     Route: 048
     Dates: start: 2017, end: 20210308
  15. ATORVASTATIN [Concomitant]
     Active Substance: ATORVASTATIN
     Indication: Coronary artery disease
     Dosage: 80 MILLIGRAM, ONCE
     Route: 048
     Dates: start: 2017, end: 20210308
  16. CLOTRIMAZOLE [Concomitant]
     Active Substance: CLOTRIMAZOLE
     Indication: Intertrigo
     Dosage: DOSE: T, BID
     Route: 061
     Dates: start: 20201123, end: 20201127
  17. DOCUSATE SODIUM [Concomitant]
     Active Substance: DOCUSATE SODIUM
     Indication: Constipation
     Dosage: 400 MG (200 MILLIGRAM, BID)
     Route: 048
     Dates: start: 2008, end: 2021
  18. GABAPENTIN [Concomitant]
     Active Substance: GABAPENTIN
     Indication: Neuralgia
     Dosage: UNK
     Route: 048
     Dates: start: 20201125, end: 20201127
  19. LANOLIN\LIGHT MINERAL OIL\PARAFFIN [Concomitant]
     Active Substance: LANOLIN\LIGHT MINERAL OIL\PARAFFIN
     Indication: Rash
     Dosage: DOSE: T TOPICAL, TID
     Route: 061
     Dates: start: 20201123, end: 2021
  20. LANSOPRAZOLE [Concomitant]
     Active Substance: LANSOPRAZOLE
     Indication: Gastrooesophageal reflux disease
     Dosage: 30 MILLIGRAM, QD
     Route: 048
     Dates: start: 2017, end: 20210308
  21. POLYETHYLENE GLYCOL 3350\POTASSIUM CHLORIDE\SODIUM BICARBONATE\SODIUM [Concomitant]
     Active Substance: POLYETHYLENE GLYCOL 3350\POTASSIUM CHLORIDE\SODIUM BICARBONATE\SODIUM CHLORIDE
     Indication: Constipation
     Dosage: DOSE: 1 SACHET, BID/PRN
     Route: 048
     Dates: start: 2008, end: 20210728
  22. LIDOCAINE [Concomitant]
     Active Substance: LIDOCAINE
     Indication: Pain
     Dosage: TOPICAL, TID
     Route: 061
     Dates: start: 20201109, end: 2021
  23. SENOKOT [Concomitant]
     Active Substance: SENNOSIDES
     Indication: Constipation
     Dosage: ALSO REPORTED AS 2 TABLETS, QD
     Route: 048
     Dates: start: 20200223, end: 20210308
  24. LANOLIN [Concomitant]
     Active Substance: LANOLIN
     Indication: Rash
     Dosage: DOSE: T TOPICAL, TID
     Route: 061
     Dates: start: 20201123, end: 2021
  25. MINERAL OIL [Concomitant]
     Active Substance: MINERAL OIL
     Indication: Rash
     Dosage: DOSE: T TOPICAL, TID
     Route: 061
     Dates: start: 20201123, end: 2021
  26. PETROLATUM [Concomitant]
     Active Substance: PETROLATUM
     Indication: Rash
     Dosage: DOSE: T TOPICAL, TID
     Route: 061
     Dates: start: 20201123, end: 2021

REACTIONS (11)
  - Cellulitis [Recovered/Resolved]
  - Fall [Recovered/Resolved]
  - Skin infection [Recovered/Resolved]
  - Cardiac failure [Recovered/Resolved]
  - Urinary retention [Unknown]
  - Accident [Unknown]
  - Dyspnoea [Not Recovered/Not Resolved]
  - Dizziness [Unknown]
  - Blood bilirubin increased [Recovered/Resolved with Sequelae]
  - Pneumonia [Recovered/Resolved]
  - Death [Fatal]

NARRATIVE: CASE EVENT DATE: 20201128
